FAERS Safety Report 8282862-3 (Version None)
Quarter: 2012Q2

REPORT INFORMATION
  Report Type: 
  Country: None (occurrence: None)
  Receive Date: 20120413
  Receipt Date: 20120403
  Transmission Date: 20120825
  Serious: Yes (Other)
  Sender: FDA-Public Use
  Company Number: ES-TEVA-328236USA

PATIENT
  Sex: Female
  Weight: 80 kg

DRUGS (6)
  1. ACYCLOVIR [Concomitant]
     Indication: PROPHYLAXIS
     Dosage: 850 MILLIGRAM;
     Dates: start: 20120306, end: 20120310
  2. TREANDA [Suspect]
     Indication: LYMPHOMA
     Dosage: 310 MILLIGRAM;
     Route: 042
  3. ETOPOSIDE [Suspect]
     Indication: LYMPHOMA
  4. CIPROFLOXACIN [Concomitant]
     Indication: PROPHYLAXIS
     Dosage: 1000 MILLIGRAM;
     Dates: start: 20120305, end: 20120309
  5. CYTARABINE [Suspect]
     Indication: LYMPHOMA
  6. MELPHALAN HYDROCHLORIDE [Suspect]
     Indication: LYMPHOMA

REACTIONS (1)
  - RENAL FAILURE ACUTE [None]
